FAERS Safety Report 19351931 (Version 3)
Quarter: 2021Q3

REPORT INFORMATION
  Report Type: Report from Study
  Country: US (occurrence: US)
  Receive Date: 20210601
  Receipt Date: 20210924
  Transmission Date: 20211014
  Serious: No
  Sender: FDA-Public Use
  Company Number: NVSC2021US114772

PATIENT
  Age: 74 Year
  Sex: Male

DRUGS (2)
  1. ENTRESTO [Suspect]
     Active Substance: SACUBITRIL\VALSARTAN
     Indication: PRODUCT USED FOR UNKNOWN INDICATION
     Dosage: 1 DF, BID (24/26 MG)
     Route: 048
     Dates: start: 20210505
  2. BUMEX [Concomitant]
     Active Substance: BUMETANIDE
     Indication: PRODUCT USED FOR UNKNOWN INDICATION
     Dosage: UNK (1/2 TO 1 TAB DAILY)
     Route: 065

REACTIONS (7)
  - Cough [Unknown]
  - Dizziness [Unknown]
  - Oedema [Unknown]
  - Dyspnoea [Recovering/Resolving]
  - Feeling abnormal [Recovered/Resolved]
  - Pollakiuria [Unknown]
  - Hypotension [Recovered/Resolved]

NARRATIVE: CASE EVENT DATE: 20210921
